FAERS Safety Report 13738517 (Version 1)
Quarter: 2017Q3

REPORT INFORMATION
  Report Type: Report from Study
  Country: US (occurrence: US)
  Receive Date: 20170710
  Receipt Date: 20170710
  Transmission Date: 20171127
  Serious: Yes (Other)
  Sender: FDA-Public Use
  Company Number: US-SAOL THERAPEUTICS-2016SAO00213

PATIENT
  Age: 62 Year
  Sex: Male

DRUGS (28)
  1. COMPOUNDED BACLOFEN [Suspect]
     Active Substance: BACLOFEN
     Dosage: 38.95 ?G, \DAY
  2. BUPIVACAINE. [Suspect]
     Active Substance: BUPIVACAINE
     Dosage: 29.952 MG, \DAY
  3. COMPOUNDED BACLOFEN [Suspect]
     Active Substance: BACLOFEN
     Dosage: 108.94 ?G, \DAY
     Route: 037
     Dates: start: 20160615
  4. COMPOUNDED BACLOFEN [Suspect]
     Active Substance: BACLOFEN
     Dosage: 199.68 ?G, \DAY
  5. COMPOUNDED BACLOFEN [Suspect]
     Active Substance: BACLOFEN
     Indication: POST LAMINECTOMY SYNDROME
     Dosage: 132.26 ?G, \DAY
     Route: 037
     Dates: start: 20160519
  6. COMPOUNDED BACLOFEN [Suspect]
     Active Substance: BACLOFEN
     Dosage: 148.73 ?G, \DAY
     Route: 037
     Dates: start: 20160607
  7. MORPHINE [Suspect]
     Active Substance: MORPHINE
     Dosage: 2.5030 MG/ML, \DAY
     Dates: start: 20160615
  8. MORPHINE [Suspect]
     Active Substance: MORPHINE
     Dosage: UNK
     Dates: start: 20160519
  9. CLONIDINE. [Suspect]
     Active Substance: CLONIDINE
     Dosage: 90.06 UNK, UNK
  10. MORPHINE [Suspect]
     Active Substance: MORPHINE
     Dosage: 2.0014 MG, \DAY
     Dates: start: 20160623
  11. BUPIVACAINE. [Suspect]
     Active Substance: BUPIVACAINE
     Dosage: 15.018 MG, \DAY
     Dates: start: 20160615
  12. BUPIVACAINE. [Suspect]
     Active Substance: BUPIVACAINE
     Dosage: 18.013 ?G, \DAY
  13. CLONIDINE. [Suspect]
     Active Substance: CLONIDINE
     Dosage: 75.09 ?G, \DAY
     Dates: start: 20160615
  14. CLONIDINE. [Suspect]
     Active Substance: CLONIDINE
     Dosage: 60.04 ?G, \DAY
     Dates: start: 20160623
  15. COMPOUNDED BACLOFEN [Suspect]
     Active Substance: BACLOFEN
     Dosage: 80.06 ?G, \DAY
     Route: 037
     Dates: start: 20160615
  16. COMPOUNDED BACLOFEN [Suspect]
     Active Substance: BACLOFEN
     Dosage: 120.08 ?G, \DAY
  17. MORPHINE [Suspect]
     Active Substance: MORPHINE
     Dosage: 4.9920 MG, \DAY
  18. BUPIVACAINE. [Suspect]
     Active Substance: BUPIVACAINE
     Dosage: 16.341 MG, \DAY
  19. CLONIDINE. [Suspect]
     Active Substance: CLONIDINE
     Dosage: 81.71 ?G, \DAY
  20. MORPHINE [Suspect]
     Active Substance: MORPHINE
     Dosage: 3.3064 MG, \DAY
     Dates: start: 20160519
  21. BUPIVACAINE. [Suspect]
     Active Substance: BUPIVACAINE
     Dosage: 12.008 MG, \DAY
     Dates: start: 20160623
  22. COMPOUNDED BACLOFEN [Suspect]
     Active Substance: BACLOFEN
     Indication: PAIN
     Dosage: 108.94 ?G, \DAY
     Dates: start: 20160519
  23. COMPOUNDED BACLOFEN [Suspect]
     Active Substance: BACLOFEN
     Dosage: 100.12 ?G, \DAY
     Route: 037
     Dates: start: 20160607
  24. COMPOUNDED BACLOFEN [Suspect]
     Active Substance: BACLOFEN
     Dosage: 186.58 ?G, \DAY
  25. MORPHINE [Suspect]
     Active Substance: MORPHINE
     Dosage: 3.002 ?G, \DAY
  26. MORPHINE [Suspect]
     Active Substance: MORPHINE
     Dosage: 2.7236 MG, \DAY
  27. BUPIVACAINE. [Suspect]
     Active Substance: BUPIVACAINE
     Dosage: 19.838 MG, \DAY
     Dates: start: 20160519
  28. CLONIDINE. [Suspect]
     Active Substance: CLONIDINE
     Dosage: 99.19 ?G, \DAY
     Dates: start: 20160519

REACTIONS (5)
  - Hypoaesthesia [Recovered/Resolved]
  - Off label use [Unknown]
  - Seroma [Recovered/Resolved]
  - Hyperaesthesia [Recovered/Resolved]
  - Device dislocation [Unknown]

NARRATIVE: CASE EVENT DATE: 2016
